FAERS Safety Report 23728665 (Version 1)
Quarter: 2024Q2

REPORT INFORMATION
  Report Type: Spontaneous
  Country: DE (occurrence: DE)
  Receive Date: 20240410
  Receipt Date: 20240410
  Transmission Date: 20240716
  Serious: Yes (Other)
  Sender: FDA-Public Use
  Company Number: DE-ROCHE-3054598

PATIENT
  Age: 30 Year
  Sex: Male
  Weight: 67 kg

DRUGS (7)
  1. FLUOROURACIL [Suspect]
     Active Substance: FLUOROURACIL
     Indication: Adenocarcinoma gastric
     Dosage: 2400 MG/M2, CYCLIC(FOR 24 HR. FOR 6 CYCLES)
     Route: 065
  2. LEUCOVORIN CALCIUM [Suspect]
     Active Substance: LEUCOVORIN CALCIUM
     Indication: Adenocarcinoma gastric
     Dosage: 200 MG/M2, CYCLIC (6CYCLES)
     Route: 065
  3. LEUCOVORIN CALCIUM [Suspect]
     Active Substance: LEUCOVORIN CALCIUM
     Indication: Metastases to liver
     Dosage: DOSES WERE REDUCED TO 75%
     Route: 065
  4. DOCETAXEL [Suspect]
     Active Substance: DOCETAXEL\DOCETAXEL ANHYDROUS
     Indication: Adenocarcinoma gastric
     Dosage: 50 MG/M2, CYCLIC (FOR 0.5 WEEK, 6 CYCLES)
     Route: 065
  5. OXALIPLATIN [Suspect]
     Active Substance: OXALIPLATIN
     Indication: Adenocarcinoma gastric
     Dosage: 85 MG/M2, CYCLIC (FOR 6 CYCLES)
     Route: 065
  6. TRASTUZUMAB [Suspect]
     Active Substance: TRASTUZUMAB
     Indication: Adenocarcinoma gastric
     Dosage: 4 MG/KG, UNKNOWN
     Route: 065
  7. FILGRASTIM [Concomitant]
     Active Substance: FILGRASTIM
     Indication: Product used for unknown indication
     Dosage: ADMINISTERED ON DAYS 4-6
     Route: 058

REACTIONS (13)
  - Tumour lysis syndrome [Unknown]
  - Polyserositis [Recovered/Resolved]
  - Eczema [Unknown]
  - Erythema [Unknown]
  - Skin reaction [Unknown]
  - Polyneuropathy [Not Recovered/Not Resolved]
  - Hepatic function abnormal [Recovering/Resolving]
  - Haematotoxicity [Unknown]
  - Ascites [Unknown]
  - Onycholysis [Unknown]
  - Paronychia [Unknown]
  - Onychoclasis [Not Recovered/Not Resolved]
  - Alopecia [Not Recovered/Not Resolved]
